FAERS Safety Report 5904202-4 (Version None)
Quarter: 2008Q3

REPORT INFORMATION
  Report Type: 
  Country: None (occurrence: None)
  Receive Date: 20080930
  Receipt Date: 20080930
  Transmission Date: 20090109
  Serious: Yes (Other)
  Sender: FDA-Public Use
  Company Number: None

PATIENT
  Age: 39 Year
  Sex: Female
  Weight: 86.1834 kg

DRUGS (1)
  1. LEXAPRO [Suspect]
     Indication: DEPRESSION
     Dosage: 5MG  DAILY PO
     Route: 048
     Dates: start: 20080818, end: 20080927

REACTIONS (2)
  - AMENORRHOEA [None]
  - WEIGHT INCREASED [None]
